FAERS Safety Report 5398710-5 (Version None)
Quarter: 2007Q3

REPORT INFORMATION
  Report Type: 
  Country: None (occurrence: None)
  Receive Date: 20070726
  Receipt Date: 20070115
  Transmission Date: 20080115
  Serious: No
  Sender: FDA-Public Use
  Company Number: US-AMGEN-KDL207267

PATIENT
  Sex: Male
  Weight: 77.2 kg

DRUGS (13)
  1. PROCRIT [Suspect]
     Indication: ANAEMIA
     Dates: start: 20060101
  2. LIPITOR [Concomitant]
  3. HYDROCHLOROTHIAZIDE [Concomitant]
  4. ISOSORBIDE MONONITRATE [Concomitant]
  5. ATENOLOL [Concomitant]
  6. FUROSEMIDE [Concomitant]
  7. IRON [Concomitant]
  8. INSULIN [Concomitant]
     Route: 058
  9. OMEPRAZOLE [Concomitant]
  10. QUININE SULFATE [Concomitant]
  11. ZOLOFT [Concomitant]
  12. SLEEPING MEDICATION NOS [Concomitant]
  13. UNSPECIFIED MEDICATION [Concomitant]

REACTIONS (2)
  - ANGINA PECTORIS [None]
  - BLOOD DISORDER [None]
